FAERS Safety Report 9226753 (Version 1)
Quarter: 2013Q2

REPORT INFORMATION
  Report Type: Spontaneous
  Country: US (occurrence: None)
  Receive Date: 20130410
  Receipt Date: 20130410
  Transmission Date: 20140414
  Serious: Yes (Other)
  Sender: FDA-Public Use
  Company Number: 13-01463

PATIENT
  Age: 84 Year
  Sex: Female
  Weight: 45.36 kg

DRUGS (2)
  1. ASTHMANEFRIN INHALATION SOLUTION [Suspect]
     Indication: INFLUENZA
     Dosage: 1 VIAL ONCE
     Dates: start: 20130326, end: 20130327
  2. ASTHMANEFRIN INHALATION SOLUTION [Suspect]
     Indication: COUGH
     Dosage: 1 VIAL ONCE
     Dates: start: 20130326, end: 20130327

REACTIONS (2)
  - Productive cough [None]
  - Sputum discoloured [None]
